FAERS Safety Report 9852659 (Version 1)
Quarter: 2014Q1

REPORT INFORMATION
  Report Type: Spontaneous
  Country: US (occurrence: None)
  Receive Date: 20140128
  Receipt Date: 20140128
  Transmission Date: 20141002
  Serious: No
  Sender: FDA-Public Use
  Company Number: None

PATIENT
  Age: 66 Year
  Sex: Female
  Weight: 76.2 kg

DRUGS (1)
  1. ZYPREXA [Suspect]
     Indication: BIPOLAR I DISORDER
     Dosage: THREE TABLETS ONCE DAILY TAKEN BY MOUTH
     Route: 048
     Dates: start: 20140115, end: 20140127

REACTIONS (7)
  - Swelling face [None]
  - Local swelling [None]
  - Musculoskeletal stiffness [None]
  - Rash [None]
  - Restlessness [None]
  - Eye movement disorder [None]
  - Headache [None]
